FAERS Safety Report 5803080-1 (Version None)
Quarter: 2008Q3

REPORT INFORMATION
  Report Type: 
  Country: None (occurrence: None)
  Receive Date: 20080703
  Receipt Date: 20080626
  Transmission Date: 20090109
  Serious: Yes (Life-Threatening, Hospitalization)
  Sender: FDA-Public Use
  Company Number: TCI2006A00008

PATIENT
  Age: 86 Year
  Sex: Female

DRUGS (14)
  1. LANSOPRAZOLE [Suspect]
     Indication: REFLUX OESOPHAGITIS
     Dosage: SEE IMAGE
     Route: 048
     Dates: start: 19990101, end: 19990101
  2. LANSOPRAZOLE [Suspect]
     Indication: REFLUX OESOPHAGITIS
     Dosage: SEE IMAGE
     Route: 048
     Dates: start: 20000101, end: 20000101
  3. LANSOPRAZOLE [Suspect]
     Indication: REFLUX OESOPHAGITIS
     Dosage: SEE IMAGE
     Route: 048
     Dates: start: 20000101, end: 20000301
  4. LANSOPRAZOLE [Suspect]
     Indication: REFLUX OESOPHAGITIS
     Dosage: SEE IMAGE
     Route: 048
     Dates: start: 20001201
  5. TAKEPRON OD TABLETS 30 (LANSOPRAZOLE) (TABLETS)` [Suspect]
     Indication: REFLUX OESOPHAGITIS
     Dosage: PER ORAL; 15 MG (15 MG, 1 IN 1 D); PER ORAL; PER ORAL; PER ORAL;
     Route: 048
     Dates: start: 20020101, end: 20050601
  6. TAKEPRON OD TABLETS 30 (LANSOPRAZOLE) (TABLETS)` [Suspect]
     Indication: REFLUX OESOPHAGITIS
     Dosage: PER ORAL; 15 MG (15 MG, 1 IN 1 D); PER ORAL; PER ORAL; PER ORAL;
     Route: 048
     Dates: start: 20021101
  7. TAKEPRON OD TABLETS 30 (LANSOPRAZOLE) (TABLETS)` [Suspect]
     Indication: REFLUX OESOPHAGITIS
     Dosage: PER ORAL; 15 MG (15 MG, 1 IN 1 D); PER ORAL; PER ORAL; PER ORAL;
     Route: 048
     Dates: start: 20020701
  8. OMEPRAL (OMEPRAZOLE) (TABLETS) [Suspect]
     Indication: REFLUX OESOPHAGITIS
     Dosage: 20 MG (20 MG, 1 IN 1 D) PER ORAL
     Route: 048
     Dates: start: 20010101, end: 20010101
  9. ZANTAC (RANITIDINE HYDROCHLORIDE) (TABLETS) [Concomitant]
  10. PRIMPERAN (METOCLOPRAMIDE) (PREPARATION FOR ORAL USE (NOS)) [Concomitant]
  11. SELBEX (TEPRENONE) (PREPARATION FOR ORAL USE (NOS)) [Concomitant]
  12. FK (FK) (POWDER) [Concomitant]
  13. CYLOCK (CIMETIDINE) (PREPARATION FOR ORAL USE (NOS)) [Concomitant]
  14. ULCERLMIN (SUCRALFATE) (PREPARATION FOR ORAL USE (NOS)) [Concomitant]

REACTIONS (24)
  - ABASIA [None]
  - ANAEMIA [None]
  - CARDIAC HYPERTROPHY [None]
  - COLON CANCER [None]
  - CONDITION AGGRAVATED [None]
  - DISEASE RECURRENCE [None]
  - DRUG ERUPTION [None]
  - DRUG INEFFECTIVE [None]
  - GASTRIC ULCER [None]
  - GASTRITIS EROSIVE [None]
  - GASTROINTESTINAL HAEMORRHAGE [None]
  - GENERAL PHYSICAL CONDITION ABNORMAL [None]
  - GENITAL RASH [None]
  - INSOMNIA [None]
  - IRON DEFICIENCY ANAEMIA [None]
  - METASTASES TO BONE [None]
  - NO THERAPEUTIC RESPONSE [None]
  - PAIN [None]
  - RASH ERYTHEMATOUS [None]
  - RASH GENERALISED [None]
  - REFLUX OESOPHAGITIS [None]
  - RENAL CYST [None]
  - RHABDOMYOLYSIS [None]
  - SPINAL COMPRESSION FRACTURE [None]
